FAERS Safety Report 17925971 (Version 2)
Quarter: 2025Q2

REPORT INFORMATION
  Report Type: Spontaneous
  Country: ES (occurrence: ES)
  Receive Date: 20200622
  Receipt Date: 20250624
  Transmission Date: 20250716
  Serious: Yes (Life-Threatening, Hospitalization, Other)
  Sender: MYLAN
  Company Number: None

PATIENT
  Age: 16 Year
  Sex: Female

DRUGS (8)
  1. ACETAMINOPHEN [Interacting]
     Active Substance: ACETAMINOPHEN
     Indication: Product used for unknown indication
     Dates: start: 20200508, end: 20200508
  2. ACETAMINOPHEN [Interacting]
     Active Substance: ACETAMINOPHEN
     Route: 048
     Dates: start: 20200508, end: 20200508
  3. ACETAMINOPHEN [Interacting]
     Active Substance: ACETAMINOPHEN
     Route: 048
     Dates: start: 20200508, end: 20200508
  4. ACETAMINOPHEN [Interacting]
     Active Substance: ACETAMINOPHEN
     Dates: start: 20200508, end: 20200508
  5. IBUPROFEN [Interacting]
     Active Substance: IBUPROFEN
     Indication: Product used for unknown indication
     Dates: start: 20200508, end: 20200508
  6. IBUPROFEN [Interacting]
     Active Substance: IBUPROFEN
     Route: 048
     Dates: start: 20200508, end: 20200508
  7. IBUPROFEN [Interacting]
     Active Substance: IBUPROFEN
     Route: 048
     Dates: start: 20200508, end: 20200508
  8. IBUPROFEN [Interacting]
     Active Substance: IBUPROFEN
     Dates: start: 20200508, end: 20200508

REACTIONS (4)
  - Acute hepatic failure [Recovered/Resolved]
  - Intentional overdose [Recovered/Resolved]
  - Suicide attempt [Unknown]
  - Drug interaction [Unknown]

NARRATIVE: CASE EVENT DATE: 20200508
